FAERS Safety Report 7255690-5 (Version None)
Quarter: 2011Q1

REPORT INFORMATION
  Report Type: 
  Country: None (occurrence: None)
  Receive Date: 20110129
  Receipt Date: 20100830
  Transmission Date: 20110831
  Serious: No
  Sender: FDA-Public Use
  Company Number: US-ABBOTT-10P-163-0666946-00

PATIENT
  Sex: Female
  Weight: 120.31 kg

DRUGS (19)
  1. HUMIRA [Suspect]
     Indication: PSORIASIS
     Dates: start: 20091213, end: 20100601
  2. HUMIRA [Suspect]
     Dates: start: 20100621, end: 20100621
  3. TEA [Concomitant]
     Indication: PRODUCT USED FOR UNKNOWN INDICATION
     Route: 048
     Dates: start: 20091014, end: 20100122
  4. ANTIVERT [Concomitant]
     Route: 048
     Dates: start: 20091222, end: 20100119
  5. TYLENOL-500 [Concomitant]
     Indication: PAIN
     Route: 048
     Dates: start: 20091014, end: 20100303
  6. GINGER [Concomitant]
     Indication: NAUSEA
     Route: 048
     Dates: start: 20100101, end: 20100123
  7. TEA, GREEN [Concomitant]
     Indication: PRODUCT USED FOR UNKNOWN INDICATION
     Route: 048
     Dates: start: 20100303, end: 20100714
  8. PRENATAL VITAMINS [Concomitant]
     Indication: PREGNANCY
     Route: 048
     Dates: start: 20091201, end: 20100714
  9. DARVOCET-N 100 [Concomitant]
     Indication: ARTHRALGIA
     Route: 048
     Dates: start: 20091014, end: 20100122
  10. IBUPROFEN [Concomitant]
     Indication: PAIN
     Route: 048
     Dates: start: 20091014, end: 20100303
  11. CAFFEINE [Concomitant]
     Indication: PRODUCT USED FOR UNKNOWN INDICATION
     Dosage: SODA
     Route: 048
     Dates: start: 20091014, end: 20100122
  12. CAFFEINE [Concomitant]
     Dosage: COKE1 IN 1.5 MONTH
     Route: 048
     Dates: start: 20100303, end: 20100714
  13. TEA [Concomitant]
     Route: 048
     Dates: start: 20100123, end: 20100303
  14. MILK OF MAGNESIA TAB [Concomitant]
     Route: 048
     Dates: start: 20100501, end: 20100714
  15. CONDOMS PLUS SPERMACIDE UNKNOWN [Concomitant]
     Indication: PRODUCT USED FOR UNKNOWN INDICATION
     Dates: start: 20091014, end: 20091125
  16. HUMIRA [Suspect]
     Indication: PSORIATIC ARTHROPATHY
     Dates: start: 20091014, end: 20091101
  17. ANTIVERT [Concomitant]
     Indication: NAUSEA
     Dates: start: 20091216, end: 20091219
  18. CAFFEINE [Concomitant]
     Dosage: SODA
     Route: 048
     Dates: start: 20100123, end: 20100303
  19. TUMS [Concomitant]
     Indication: DYSPEPSIA
     Dosage: 2.5 PILL 1 MONTH
     Route: 048
     Dates: start: 20100303, end: 20100601

REACTIONS (1)
  - TEMPOROMANDIBULAR JOINT SYNDROME [None]
